FAERS Safety Report 4766281-X (Version None)
Quarter: 2005Q3

REPORT INFORMATION
  Report Type: 
  Country: None (occurrence: None)
  Receive Date: 20050909
  Receipt Date: 20050825
  Transmission Date: 20060218
  Serious: Yes (Other)
  Sender: FDA-Public Use
  Company Number: PHBS2005BE12484

PATIENT
  Age: 76 Year
  Sex: Male

DRUGS (9)
  1. VISUDYNE [Suspect]
     Indication: MACULAR DEGENERATION
     Dosage: NI
     Dates: start: 20041101, end: 20041101
  2. ASAFLOW [Concomitant]
  3. AMLOR [Concomitant]
  4. ISOTEN [Concomitant]
  5. SYMBICORT TURBUHALER [Concomitant]
  6. LYSOMUCIL [Concomitant]
  7. AERIUS [Concomitant]
  8. EYE DROPS [Concomitant]
  9. SIRIVA [Concomitant]

REACTIONS (3)
  - DRUG HYPERSENSITIVITY [None]
  - ECZEMA [None]
  - TYPE IV HYPERSENSITIVITY REACTION [None]
